FAERS Safety Report 5105302-1 (Version None)
Quarter: 2006Q3

REPORT INFORMATION
  Report Type: 
  Country: None (occurrence: None)
  Receive Date: 20060912
  Receipt Date: 20060831
  Transmission Date: 20061208
  Serious: Yes (Life-Threatening, Hospitalization)
  Sender: FDA-Public Use
  Company Number: 226450

PATIENT
  Age: 52 Year
  Sex: Female
  Weight: 50 kg

DRUGS (14)
  1. AVASTIN [Suspect]
     Indication: COLORECTAL CANCER METASTATIC
     Dosage: 428 MG, Q3W, INTRAVENOUS
     Route: 042
     Dates: start: 20050727, end: 20060601
  2. CAPECITABINE (CAPECITABINE) [Suspect]
     Indication: COLORECTAL CANCER METASTATIC
     Dosage: 1250 MG, BID, ORAL
     Route: 048
     Dates: start: 20050727, end: 20060601
  3. MITOMYCIN [Suspect]
     Indication: COLORECTAL CANCER METASTATIC
     Dosage: 8.4 MG
     Dates: start: 20050727, end: 20060601
  4. PANADEINE FORTE (ACETAMINOPHEN, CODEINE PHOSPHATE) [Concomitant]
  5. ESOMEPRAZOLE (ESOMEPRAZOLE MAGNESIUM) [Concomitant]
  6. GLYCERYL TRINITRATE (NITROGLYCERIN) [Concomitant]
  7. LACTULOSE [Concomitant]
  8. IRBESARTAN [Concomitant]
  9. PREDNISOLONE [Concomitant]
  10. ATENOLOL [Concomitant]
  11. FELODIPINE [Concomitant]
  12. FLUSEMIDE (NICARDIPINE HYDROCHLORIDE) [Concomitant]
  13. NICOTINE [Concomitant]
  14. CLOTRIMAZOLE CREAM (CLOTRIMAZOLE) [Concomitant]

REACTIONS (5)
  - ACUTE RESPIRATORY FAILURE [None]
  - HYPERTENSION [None]
  - MYOCARDIAL INFARCTION [None]
  - NEPHROTIC SYNDROME [None]
  - PULMONARY HAEMORRHAGE [None]
